FAERS Safety Report 8687662 (Version 3)
Quarter: 2012Q4

REPORT INFORMATION
  Report Type: 
  Country: FR (occurrence: FR)
  Receive Date: 20120727
  Receipt Date: 20121004
  Transmission Date: 20130627
  Serious: Yes (Death)
  Sender: FDA-Public Use
  Company Number: FR-NAPPMUNDI-GBR-2012-0011041

PATIENT
  Age: 76 Year
  Sex: Male

DRUGS (7)
  1. OXYCONTIN LP, COMPRIME PELLICULE A LIBERATION PROLONGEE [Suspect]
     Indication: PRODUCT USED FOR UNKNOWN INDICATION
     Dosage: 50 mg, daily
     Route: 048
     Dates: start: 20120629, end: 20120629
  2. OXYCODONE [Suspect]
     Indication: PRODUCT USED FOR UNKNOWN INDICATION
     Dosage: UNK, prn
  3. PARIET [Concomitant]
     Dosage: 10 mg, nocte
  4. MOTILIUM                           /00498201/ [Concomitant]
  5. LEXOMIL [Concomitant]
     Dosage: 0.5 tablet, daily
  6. FORLAX                             /00754501/ [Concomitant]
     Dosage: 2 tablet, UNK
  7. KAYEXALATE [Concomitant]
     Dosage: 2 measuring spoons at lunch

REACTIONS (9)
  - Incorrect dose administered [Fatal]
  - Toxicity to various agents [Fatal]
  - Infection [Not Recovered/Not Resolved]
  - Condition aggravated [Not Recovered/Not Resolved]
  - Abdominal discomfort [Not Recovered/Not Resolved]
  - Urinary retention [Not Recovered/Not Resolved]
  - Anxiety [Not Recovered/Not Resolved]
  - Agitation [Not Recovered/Not Resolved]
  - Death [Fatal]
